FAERS Safety Report 7668345-X (Version None)
Quarter: 2011Q3

REPORT INFORMATION
  Report Type: 
  Country: None (occurrence: None)
  Receive Date: 20110803
  Receipt Date: 20110721
  Transmission Date: 20111222
  Serious: Yes (Death, Hospitalization, Other)
  Sender: FDA-Public Use
  Company Number: AUR-APL-2009-001115

PATIENT
  Age: 29 Year
  Sex: Male

DRUGS (3)
  1. METFORMIN HCL [Suspect]
     Indication: SUICIDE ATTEMPT
     Dosage: 850 MG ORAL
     Route: 048
  2. METFORMIN HCL [Suspect]
     Indication: PRODUCT USED FOR UNKNOWN INDICATION
     Dosage: 850 MG ORAL
     Route: 048
  3. ETHANOL (ETHANOL) [Suspect]
     Indication: PRODUCT USED FOR UNKNOWN INDICATION

REACTIONS (33)
  - VOMITING [None]
  - DIARRHOEA [None]
  - ABDOMINAL PAIN [None]
  - ELECTROCARDIOGRAM QRS COMPLEX SHORTENED [None]
  - TROPONIN I INCREASED [None]
  - THIRST [None]
  - ASPIRATION [None]
  - VENTRICULAR TACHYCARDIA [None]
  - BLOOD CREATINE PHOSPHOKINASE MB INCREASED [None]
  - COMPLETED SUICIDE [None]
  - PLATELET COUNT INCREASED [None]
  - DRUG INTERACTION [None]
  - BLOOD CREATININE INCREASED [None]
  - BLOOD FIBRINOGEN DECREASED [None]
  - LEFT VENTRICULAR DYSFUNCTION [None]
  - FIBRIN D DIMER INCREASED [None]
  - LACTIC ACIDOSIS [None]
  - AGGRESSION [None]
  - PULSELESS ELECTRICAL ACTIVITY [None]
  - PAIN IN EXTREMITY [None]
  - RESPIRATORY RATE INCREASED [None]
  - SINUS TACHYCARDIA [None]
  - BLOOD PRESSURE DECREASED [None]
  - MULTIPLE DRUG OVERDOSE INTENTIONAL [None]
  - BODY TEMPERATURE DECREASED [None]
  - HYPERGLYCAEMIA [None]
  - HAEMODIALYSIS [None]
  - UNRESPONSIVE TO STIMULI [None]
  - HEART RATE DECREASED [None]
  - COAGULOPATHY [None]
  - PANCREATITIS ACUTE [None]
  - TOXICITY TO VARIOUS AGENTS [None]
  - DIABETIC KETOACIDOSIS [None]
